FAERS Safety Report 25587453 (Version 1)
Quarter: 2025Q3

REPORT INFORMATION
  Report Type: Spontaneous
  Country: US (occurrence: US)
  Receive Date: 20250721
  Receipt Date: 20250721
  Transmission Date: 20251021
  Serious: No
  Sender: PFIZER
  Company Number: US-PFIZER INC-PV202500086931

PATIENT
  Age: 62 Year
  Sex: Female

DRUGS (1)
  1. ZAVZPRET [Suspect]
     Active Substance: ZAVEGEPANT HYDROCHLORIDE

REACTIONS (3)
  - Drug hypersensitivity [Unknown]
  - Erythema [Recovered/Resolved]
  - Pruritus [Unknown]
